FAERS Safety Report 14674670 (Version 2)
Quarter: 2018Q2

REPORT INFORMATION
  Report Type: Spontaneous
  Country: US (occurrence: US)
  Receive Date: 20180323
  Receipt Date: 20180517
  Transmission Date: 20180711
  Serious: Yes (Hospitalization, Other)
  Sender: FDA-Public Use
  Company Number: US-SA-2018SA080290

PATIENT
  Age: 48 Year
  Sex: Female
  Weight: 55 kg

DRUGS (17)
  1. VALSARTAN. [Concomitant]
     Active Substance: VALSARTAN
     Route: 048
  2. MONTELUKAST [Concomitant]
     Active Substance: MONTELUKAST SODIUM
     Indication: ASTHMA
     Route: 048
  3. PROPAFENONE. [Concomitant]
     Active Substance: PROPAFENONE
     Route: 065
  4. FABRAZYME [Suspect]
     Active Substance: AGALSIDASE BETA
     Indication: FABRY^S DISEASE
     Route: 041
     Dates: start: 20070629
  5. GABAPENTIN. [Concomitant]
     Active Substance: GABAPENTIN
     Indication: NEURALGIA
     Route: 048
     Dates: start: 20180317
  6. PLAVIX [Concomitant]
     Active Substance: CLOPIDOGREL BISULFATE
     Indication: ANTIPLATELET THERAPY
     Route: 048
     Dates: start: 20180317
  7. ARMOUR THYROID [Concomitant]
     Active Substance: THYROID, PORCINE
     Route: 048
  8. PANTHENOL/RETINOL/THIAMINE HYDROCHLORIDE/ASCORBIC ACID/ERGOCALCIFEROL/FOLIC ACID/RIBOFLAVIN/NICOTINA [Concomitant]
     Route: 048
  9. XARELTO [Concomitant]
     Active Substance: RIVAROXABAN
     Indication: ATRIAL FIBRILLATION
     Route: 048
     Dates: start: 2018
  10. ACETAMINOPHEN. [Concomitant]
     Active Substance: ACETAMINOPHEN
     Route: 048
  11. METOPROLOL. [Concomitant]
     Active Substance: METOPROLOL
     Route: 048
  12. FABRAZYME [Suspect]
     Active Substance: AGALSIDASE BETA
     Indication: FABRY^S DISEASE
     Route: 041
     Dates: start: 20070629
  13. BIOTIN [Concomitant]
     Active Substance: BIOTIN
     Route: 065
  14. DIOVAN [Concomitant]
     Active Substance: VALSARTAN
     Indication: HYPERTENSION
     Route: 048
  15. SINGULAIR [Concomitant]
     Active Substance: MONTELUKAST SODIUM
     Route: 065
  16. QVAR [Concomitant]
     Active Substance: BECLOMETHASONE DIPROPIONATE
     Route: 065
  17. NASAL SPRAY [Concomitant]
     Active Substance: UNSPECIFIED INGREDIENT
     Route: 065

REACTIONS (36)
  - Aphasia [Unknown]
  - Ischaemic stroke [Recovering/Resolving]
  - Ischaemia [Unknown]
  - Carbon dioxide decreased [Unknown]
  - Cerebral infarction [Unknown]
  - Hypothyroidism [Unknown]
  - Congestive cardiomyopathy [Unknown]
  - Heart valve incompetence [Recovered/Resolved]
  - Haematocrit decreased [Unknown]
  - White blood cells urine positive [Unknown]
  - Cognitive disorder [Unknown]
  - Nuclear magnetic resonance imaging brain abnormal [Unknown]
  - Ventricular hypertrophy [Unknown]
  - Blood creatinine abnormal [Unknown]
  - Blood urea decreased [Unknown]
  - Atrial flutter [Not Recovered/Not Resolved]
  - Albumin urine present [Unknown]
  - Urine abnormality [Unknown]
  - Blood chloride increased [Unknown]
  - Confusional state [Recovered/Resolved]
  - Cerebral hypoperfusion [Unknown]
  - Protein total decreased [Unknown]
  - White blood cell count decreased [Unknown]
  - Cerebrovascular accident [Recovering/Resolving]
  - Paroxysmal arrhythmia [Recovered/Resolved]
  - Urine protein/creatinine ratio abnormal [Unknown]
  - Contusion [Unknown]
  - Unevaluable event [Unknown]
  - Blood calcium decreased [Unknown]
  - Blood albumin decreased [Unknown]
  - Platelet count decreased [Unknown]
  - Facial paralysis [Unknown]
  - Autoimmune thyroiditis [Unknown]
  - Bacterial test [Unknown]
  - Proteinuria [Recovered/Resolved]
  - Cerebral ischaemia [Unknown]

NARRATIVE: CASE EVENT DATE: 2012
